FAERS Safety Report 10230300 (Version 1)
Quarter: 2014Q2

REPORT INFORMATION
  Report Type: Report from Study
  Country: AU (occurrence: AU)
  Receive Date: 20140611
  Receipt Date: 20140611
  Transmission Date: 20141212
  Serious: Yes (Other)
  Sender: FDA-Public Use
  Company Number: AU-SA-2014SA071649

PATIENT
  Age: 82 Year
  Sex: Female

DRUGS (4)
  1. LANTUS [Suspect]
     Indication: PRODUCT USED FOR UNKNOWN INDICATION
     Dosage: DOSE:35 UNIT(S)
     Route: 065
     Dates: start: 20130908
  2. LANTUS [Suspect]
     Indication: PRODUCT USED FOR UNKNOWN INDICATION
     Dosage: DOSE:50 UNIT(S)
     Route: 065
  3. LANTUS [Suspect]
     Indication: PRODUCT USED FOR UNKNOWN INDICATION
     Dosage: DOSE:30 UNIT(S)
     Route: 065
  4. LANTUS [Suspect]
     Indication: PRODUCT USED FOR UNKNOWN INDICATION
     Dosage: DOSE:35 UNIT(S)
     Route: 065

REACTIONS (7)
  - Gastrointestinal carcinoma [Recovering/Resolving]
  - Intestinal resection [Unknown]
  - Haemorrhage [Recovering/Resolving]
  - Anaemia [Recovering/Resolving]
  - Blood glucose increased [Recovering/Resolving]
  - Vomiting [Recovering/Resolving]
  - Diarrhoea [Recovering/Resolving]
